FAERS Safety Report 17258377 (Version 2)
Quarter: 2020Q1

REPORT INFORMATION
  Report Type: Spontaneous
  Country: JP (occurrence: JP)
  Receive Date: 20200110
  Receipt Date: 20200207
  Transmission Date: 20200409
  Serious: Yes (Other)
  Sender: FDA-Public Use
  Company Number: JP-PFIZER INC-2020012231

PATIENT
  Age: 5 Decade
  Sex: Female

DRUGS (6)
  1. HERCEPTIN [Concomitant]
     Active Substance: TRASTUZUMAB
     Dosage: UNK
  2. PACLITAXEL 30MG/5ML HOSPIRA [Suspect]
     Active Substance: PACLITAXEL
     Dosage: 120 MG, DAILY
     Dates: start: 20190809, end: 20191227
  3. PERJETA [Concomitant]
     Active Substance: PERTUZUMAB
     Dosage: UNK
  4. NOVAMIN [PROCHLORPERAZINE MALEATE] [Concomitant]
     Dosage: UNK
  5. BIO-THREE [Concomitant]
     Active Substance: HERBALS
     Dosage: UNK
  6. LOPERAMIDE [LOPERAMIDE HYDROCHLORIDE] [Concomitant]
     Active Substance: LOPERAMIDE HYDROCHLORIDE
     Dosage: UNK

REACTIONS (2)
  - Macular oedema [Recovering/Resolving]
  - Visual impairment [Recovering/Resolving]

NARRATIVE: CASE EVENT DATE: 201912
